FAERS Safety Report 14591704 (Version 3)
Quarter: 2018Q2

REPORT INFORMATION
  Report Type: Report from Study
  Country: CN (occurrence: CN)
  Receive Date: 20180302
  Receipt Date: 20180420
  Transmission Date: 20180711
  Serious: Yes (Hospitalization)
  Sender: FDA-Public Use
  Company Number: CN-ASTRAZENECA-2018SE16120

PATIENT
  Age: 64 Year
  Sex: Female

DRUGS (10)
  1. METFORMIN [Concomitant]
     Active Substance: METFORMIN HYDROCHLORIDE
  2. BYETTA [Suspect]
     Active Substance: EXENATIDE
     Indication: OVERWEIGHT
     Route: 058
     Dates: start: 201712, end: 201804
  3. INSULIN [Concomitant]
     Active Substance: INSULIN NOS
     Dosage: 12 UNITS AND THE HIGHEST DOSAGE WAS 48 UNITS
     Dates: start: 2017
  4. INSULIN [Concomitant]
     Active Substance: INSULIN NOS
     Dosage: 20 UNITS
     Dates: start: 20180307
  5. BYETTA [Suspect]
     Active Substance: EXENATIDE
     Indication: DIABETES MELLITUS
     Route: 058
     Dates: start: 201712, end: 201804
  6. GLUCOBAY [Concomitant]
     Active Substance: ACARBOSE
     Dosage: ONE PILL AT NOON
  7. METFORMIN [Concomitant]
     Active Substance: METFORMIN HYDROCHLORIDE
     Dates: start: 20180215, end: 20180221
  8. SITAGLIPTIN [Concomitant]
     Active Substance: SITAGLIPTIN
  9. INSULIN [Concomitant]
     Active Substance: INSULIN NOS
     Dosage: DECREASED TO RECEIVE IT 30 UNITS
  10. METFORMIN [Concomitant]
     Active Substance: METFORMIN HYDROCHLORIDE
     Dosage: 0.5G X 4

REACTIONS (6)
  - Nausea [Unknown]
  - Herpes virus infection [Recovering/Resolving]
  - Off label use [Not Recovered/Not Resolved]
  - Blood glucose increased [Not Recovered/Not Resolved]
  - Abdominal discomfort [Unknown]
  - Product use in unapproved indication [Not Recovered/Not Resolved]

NARRATIVE: CASE EVENT DATE: 201712
